FAERS Safety Report 6834486-X (Version None)
Quarter: 2010Q3

REPORT INFORMATION
  Report Type: 
  Country: None (occurrence: None)
  Receive Date: 20100712
  Receipt Date: 20080410
  Transmission Date: 20110219
  Serious: No
  Sender: FDA-Public Use
  Company Number: US-PFIZER INC-2007027938

PATIENT
  Sex: Female
  Weight: 69.85 kg

DRUGS (18)
  1. CHANTIX [Suspect]
     Indication: SMOKING CESSATION THERAPY
     Route: 048
     Dates: start: 20070301, end: 20070301
  2. NEXIUM [Concomitant]
  3. CYMBALTA [Concomitant]
  4. MONTELUKAST SODIUM [Concomitant]
  5. CELEBREX [Concomitant]
  6. DIGITEK [Concomitant]
  7. VASOTEC [Concomitant]
  8. AMBIEN [Concomitant]
  9. ADVAIR DISKUS 100/50 [Concomitant]
  10. AVANDIA [Concomitant]
  11. ZYRTEC [Concomitant]
  12. TYLENOL W/ CODEINE NO. 4 [Concomitant]
  13. LOPRESSOR [Concomitant]
  14. ATARAX [Concomitant]
  15. FLONASE [Concomitant]
  16. LIPITOR [Concomitant]
  17. WELLBUTRIN XL [Concomitant]
  18. DIGOXIN [Concomitant]

REACTIONS (7)
  - DECREASED APPETITE [None]
  - DRUG DOSE OMISSION [None]
  - FEELING ABNORMAL [None]
  - HEADACHE [None]
  - MALAISE [None]
  - NAUSEA [None]
  - TOBACCO USER [None]
